APPROVED DRUG PRODUCT: NORDETTE-28
Active Ingredient: ETHINYL ESTRADIOL; LEVONORGESTREL
Strength: 0.03MG;0.15MG **Federal Register determination that product was not discontinued or withdrawn for safety or effectiveness reasons**
Dosage Form/Route: TABLET;ORAL-28
Application: N018782 | Product #001
Applicant: TEVA BRANDED PHARMACEUTICAL PRODUCTS R AND D INC
Approved: Jul 21, 1982 | RLD: Yes | RS: No | Type: DISCN